FAERS Safety Report 15177929 (Version 1)
Quarter: 2018Q3

REPORT INFORMATION
  Report Type: Spontaneous
  Country: AT (occurrence: AT)
  Receive Date: 20180720
  Receipt Date: 20180720
  Transmission Date: 20181010
  Serious: Yes (Other)
  Sender: FDA-Public Use
  Company Number: AT-ANIPHARMA-2018-AT-000009

PATIENT
  Age: 54 Year
  Sex: Female
  Weight: 90 kg

DRUGS (9)
  1. BIOPHOSPHONATES/OLD CODE [Concomitant]
     Route: 065
  2. PALBOCICLIB [Suspect]
     Active Substance: PALBOCICLIB
     Dosage: 125MG Q4WK
     Route: 048
  3. DENOSUMAB [Suspect]
     Active Substance: DENOSUMAB
     Dosage: 120MG Q4WK
     Route: 065
  4. ZOMETA [Suspect]
     Active Substance: ZOLEDRONIC ACID
     Route: 065
  5. FULVESTRANT. [Suspect]
     Active Substance: FULVESTRANT
     Dosage: 500MG Q4WK
     Route: 030
  6. FEMARA [Suspect]
     Active Substance: LETROZOLE
     Dosage: 2.5MG DAILY
     Route: 065
  7. GOSERELIN [Suspect]
     Active Substance: GOSERELIN
     Route: 058
  8. ANASTROZOLE. [Suspect]
     Active Substance: ANASTROZOLE
     Indication: BREAST CANCER
     Route: 048
  9. TAMOXIFEN [Suspect]
     Active Substance: TAMOXIFEN
     Route: 048

REACTIONS (8)
  - Recurrent cancer [Unknown]
  - Metastases to lung [Unknown]
  - Metastases to liver [Unknown]
  - Metastases to bone [Unknown]
  - Breast cancer [Unknown]
  - Tumour marker increased [Unknown]
  - Malignant neoplasm progression [Unknown]
  - Musculoskeletal chest pain [Unknown]

NARRATIVE: CASE EVENT DATE: 20130429
